FAERS Safety Report 6674405-2 (Version None)
Quarter: 2010Q1

REPORT INFORMATION
  Report Type: 
  Country: None (occurrence: None)
  Receive Date: 20100329
  Receipt Date: 20090421
  Transmission Date: 20100710
  Serious: Yes (Other)
  Sender: FDA-Public Use
  Company Number: 2009202255

PATIENT
  Age: 49 Year
  Sex: Female

DRUGS (2)
  1. GEODON [Suspect]
  2. OMEGA-3 TRIGLYCERIDES (OMEGA-3 TRIGLYCERIDES) [Concomitant]

REACTIONS (5)
  - DYSKINESIA [None]
  - HYPOAESTHESIA [None]
  - TONGUE BITING [None]
  - TREMOR [None]
  - WEIGHT FLUCTUATION [None]
